FAERS Safety Report 9250884 (Version 2)
Quarter: 2013Q2

REPORT INFORMATION
  Report Type: Spontaneous
  Country: NO (occurrence: NO)
  Receive Date: 20130424
  Receipt Date: 20130430
  Transmission Date: 20140414
  Serious: Yes (Other)
  Sender: FDA-Public Use
  Company Number: PHHY2013NO036611

PATIENT
  Age: 44 Year
  Sex: Female

DRUGS (7)
  1. CLOZAPINE [Suspect]
     Indication: SCHIZOAFFECTIVE DISORDER
     Dosage: UNK
  2. ZOPICLONE [Suspect]
     Dosage: UNK
  3. QUETIAPINE [Suspect]
     Dosage: 1800 MG, A DAY
  4. ALIMEMAZINE [Suspect]
     Dosage: UNK
  5. CHLORPROTHIXENE [Concomitant]
     Dosage: UNK
  6. LITHIUM [Concomitant]
  7. LORAZEPAM [Concomitant]
     Dosage: UNK

REACTIONS (1)
  - Agranulocytosis [Unknown]
